FAERS Safety Report 12635153 (Version 1)
Quarter: 2016Q3

REPORT INFORMATION
  Report Type: Spontaneous
  Country: IL (occurrence: IL)
  Receive Date: 20160809
  Receipt Date: 20160809
  Transmission Date: 20161109
  Serious: Yes (Other)
  Sender: FDA-Public Use
  Company Number: PHHY2016IL072360

PATIENT
  Age: 68 Year
  Sex: Male

DRUGS (2)
  1. AFINITOR [Suspect]
     Active Substance: EVEROLIMUS
     Indication: PANCREATIC NEUROENDOCRINE TUMOUR
  2. AFINITOR [Suspect]
     Active Substance: EVEROLIMUS
     Indication: GASTROINTESTINAL DISORDER
     Dosage: 10 MG, QD
     Route: 065
     Dates: start: 201604

REACTIONS (4)
  - Chronic myeloid leukaemia [Unknown]
  - Leukocytosis [Unknown]
  - Second primary malignancy [Unknown]
  - Product use issue [Unknown]
